FAERS Safety Report 19066445 (Version 1)
Quarter: 2021Q1

REPORT INFORMATION
  Report Type: Spontaneous
  Country: SE (occurrence: SE)
  Receive Date: 20210328
  Receipt Date: 20210328
  Transmission Date: 20210420
  Serious: Yes (Other)
  Sender: FDA-Public Use
  Company Number: SE-ASTRAZENECA-2021A184528

PATIENT
  Age: 28 Year
  Sex: Male

DRUGS (1)
  1. QUETIAPINE. [Suspect]
     Active Substance: QUETIAPINE
     Route: 065
     Dates: start: 20210215, end: 20210220

REACTIONS (2)
  - Panic attack [Recovered/Resolved]
  - Derealisation [Recovered/Resolved]

NARRATIVE: CASE EVENT DATE: 202102
